FAERS Safety Report 16675902 (Version 1)
Quarter: 2019Q3

REPORT INFORMATION
  Report Type: Report from Study
  Country: None (occurrence: US)
  Receive Date: 20190807
  Receipt Date: 20190807
  Transmission Date: 20191004
  Serious: Yes (Other)
  Sender: FDA-Public Use
  Company Number: US-ABBVIE-19K-163-2874120-00

PATIENT
  Age: 67 Year
  Sex: Female

DRUGS (1)
  1. SYNTHROID [Suspect]
     Active Substance: LEVOTHYROXINE SODIUM
     Indication: PRODUCT USED FOR UNKNOWN INDICATION
     Route: 048

REACTIONS (9)
  - Dupuytren^s contracture [Unknown]
  - Pulmonary mass [Unknown]
  - Chronic obstructive pulmonary disease [Unknown]
  - Plastic surgery [Unknown]
  - Chronic respiratory failure [Unknown]
  - Cataract [Unknown]
  - Finger repair operation [Unknown]
  - Emphysema [Unknown]
  - Fasciotomy [Unknown]

NARRATIVE: CASE EVENT DATE: 201102
